FAERS Safety Report 7068571-7 (Version None)
Quarter: 2010Q4

REPORT INFORMATION
  Report Type: 
  Country: None (occurrence: None)
  Receive Date: 20101028
  Receipt Date: 20101021
  Transmission Date: 20110411
  Serious: Yes (Death, Life-Threatening, Hospitalization)
  Sender: FDA-Public Use
  Company Number: PHHO2010DE15965

PATIENT
  Sex: Male

DRUGS (11)
  1. STI571/CGP57148B T35717+CAPS [Suspect]
     Indication: CHRONIC MYELOID LEUKAEMIA
     Dosage: 400MG DAILY
     Route: 048
     Dates: start: 20090213
  2. HYDROXYCARBAMIDE [Concomitant]
  3. FASTURTEC [Concomitant]
  4. NOVALGIN [Concomitant]
  5. DELIX [Concomitant]
  6. PANTOPRAZOLE SODIUM [Concomitant]
  7. ISCOVER [Concomitant]
  8. TOREM [Concomitant]
  9. DURAGESIC-100 [Concomitant]
  10. KALINOR [Concomitant]
  11. REMID [Concomitant]

REACTIONS (5)
  - HAEMORRHAGE [None]
  - MECHANICAL VENTILATION [None]
  - PERFORMANCE STATUS DECREASED [None]
  - PYREXIA [None]
  - STAPHYLOCOCCAL SEPSIS [None]
